FAERS Safety Report 10254837 (Version 2)
Quarter: 2014Q2

REPORT INFORMATION
  Report Type: Report from Study
  Country: JP (occurrence: JP)
  Receive Date: 20140624
  Receipt Date: 20140624
  Transmission Date: 20141212
  Serious: Yes (Life-Threatening, Hospitalization)
  Sender: FDA-Public Use
  Company Number: JP-AMGEN-JPNCT2014018339

PATIENT
  Age: 80 Year
  Sex: Male
  Weight: 44 kg

DRUGS (40)
  1. DARBEPOETIN ALFA [Suspect]
     Indication: PRODUCT USED FOR UNKNOWN INDICATION
     Dosage: 40 MUG, Q2WK
     Route: 058
     Dates: start: 20110329
  2. ADALAT [Concomitant]
     Dosage: UNK
     Route: 048
  3. LASIX                              /00032601/ [Concomitant]
     Dosage: UNK
     Route: 048
  4. ZYLORIC [Concomitant]
     Dosage: UNK
     Route: 048
  5. KAYEXALATE [Concomitant]
     Dosage: UNK
     Route: 048
  6. KREMEZIN [Concomitant]
     Indication: GLOMERULONEPHRITIS CHRONIC
     Dosage: UNK
     Route: 048
  7. ONEALFA [Concomitant]
     Dosage: UNK
     Route: 048
  8. BONALON [Concomitant]
     Dosage: 35 MG, UNK
     Route: 048
  9. ZYRTEC [Concomitant]
     Dosage: UNK
     Route: 048
  10. RINDERON-VG [Concomitant]
     Dosage: UNK
     Route: 061
  11. ATARAX                             /00058401/ [Concomitant]
     Dosage: UNK
     Route: 048
  12. ALLELOCK [Concomitant]
     Dosage: UNK
     Route: 048
  13. NIPOLAZIN [Concomitant]
     Dosage: UNK
     Route: 048
  14. TRANSAMIN [Concomitant]
     Dosage: UNK
     Route: 048
  15. MUCOSOLVAN [Concomitant]
     Dosage: UNK
     Route: 048
  16. RULID [Concomitant]
     Dosage: UNK
     Route: 048
  17. AZUNOL                             /00317302/ [Concomitant]
     Dosage: UNK
     Route: 049
  18. KAKKONTO [Concomitant]
     Dosage: UNK
     Route: 048
  19. CALONAL [Concomitant]
     Dosage: UNK
     Route: 048
  20. FEBURIC [Concomitant]
     Dosage: UNK
     Route: 048
  21. GENINAX [Concomitant]
     Dosage: UNK
     Route: 048
  22. MEDICON                            /00048102/ [Concomitant]
     Dosage: UNK
     Route: 048
  23. FLOMOX                             /01418603/ [Concomitant]
     Dosage: UNK
     Route: 048
  24. INTEBAN [Concomitant]
     Dosage: UNK
     Route: 061
  25. LOXONIN [Concomitant]
     Dosage: UNK
     Route: 048
  26. CEFZON [Concomitant]
     Dosage: UNK
     Route: 048
  27. HIRUDOID                           /00723701/ [Concomitant]
     Dosage: UNK
     Route: 061
  28. ZEPOLAS [Concomitant]
     Dosage: UNK
     Route: 061
  29. REZALTAS [Concomitant]
     Dosage: UNK
     Route: 048
  30. DIART [Concomitant]
     Dosage: UNK
     Route: 048
  31. NEUQUINON [Concomitant]
     Indication: ANGINA PECTORIS
     Dosage: UNK
     Route: 048
  32. ARTIST [Concomitant]
     Dosage: UNK
     Route: 048
  33. ALESION [Concomitant]
     Dosage: UNK
     Route: 048
  34. ALLEGRA [Concomitant]
     Dosage: UNK
     Route: 048
  35. JUVELA                             /00110502/ [Concomitant]
     Indication: ECZEMA
     Dosage: UNK
     Route: 061
  36. CATLEP [Concomitant]
     Dosage: UNK
     Route: 061
  37. EPOGIN [Concomitant]
     Indication: GLOMERULONEPHRITIS CHRONIC
     Dosage: UNK
     Route: 065
  38. CARBENIN [Concomitant]
     Dosage: UNK
     Route: 041
  39. NEOAMIYU [Concomitant]
     Dosage: UNK
     Route: 065
  40. GLUCOSE [Concomitant]
     Indication: NEPHROGENIC ANAEMIA
     Dosage: UNK
     Route: 065

REACTIONS (14)
  - Lung neoplasm malignant [Not Recovered/Not Resolved]
  - Pneumonia [Recovered/Resolved]
  - Depression [Unknown]
  - Cachexia [Unknown]
  - Bronchitis [Recovering/Resolving]
  - Delirium [Unknown]
  - Pharyngitis [Recovering/Resolving]
  - Upper respiratory tract inflammation [Recovering/Resolving]
  - Myalgia [Recovering/Resolving]
  - Angina pectoris [Recovering/Resolving]
  - Insomnia [Unknown]
  - Constipation [Unknown]
  - Iron deficiency anaemia [Unknown]
  - Procedural hypotension [Unknown]
